FAERS Safety Report 4698291-5 (Version None)
Quarter: 2005Q2

REPORT INFORMATION
  Report Type: 
  Country: None (occurrence: None)
  Receive Date: 20050621
  Receipt Date: 20050531
  Transmission Date: 20051028
  Serious: Yes (Death)
  Sender: FDA-Public Use
  Company Number: B0383667A

PATIENT
  Age: 52 Year
  Sex: Male

DRUGS (5)
  1. EPIVIR [Suspect]
     Indication: ILL-DEFINED DISORDER
  2. RETROVIR [Suspect]
     Indication: ILL-DEFINED DISORDER
  3. LOPINAVIR (LOPINAVIR) [Suspect]
     Indication: ILL-DEFINED DISORDER
  4. RITONAVIR (RITONAVIR) [Suspect]
     Indication: ILL-DEFINED DISORDER
  5. DIDANOSINE [Suspect]
     Indication: ILL-DEFINED DISORDER

REACTIONS (9)
  - AGGRESSION [None]
  - APHASIA [None]
  - CEREBRAL DISORDER [None]
  - CONFUSIONAL STATE [None]
  - DISORIENTATION [None]
  - ENCEPHALITIS [None]
  - IMMUNE RECONSTITUTION SYNDROME [None]
  - PROGRESSIVE MULTIFOCAL LEUKOENCEPHALOPATHY [None]
  - SEPTIC SHOCK [None]
